FAERS Safety Report 22536762 (Version 2)
Quarter: 2023Q2

REPORT INFORMATION
  Report Type: Report from Study
  Country: US (occurrence: US)
  Receive Date: 20230608
  Receipt Date: 20230609
  Transmission Date: 20230722
  Serious: Yes (Death, Hospitalization, Other)
  Sender: FDA-Public Use
  Company Number: US-ABBVIE-5281504

PATIENT
  Age: 55 Year
  Sex: Male

DRUGS (1)
  1. SYNTHROID [Suspect]
     Active Substance: LEVOTHYROXINE SODIUM
     Indication: Thyroidectomy
     Dosage: FORM STRENGTH: 150 MICROGRAM
     Route: 048
     Dates: start: 2016, end: 2023

REACTIONS (1)
  - Cardiac operation [Fatal]

NARRATIVE: CASE EVENT DATE: 20230509
